FAERS Safety Report 6663263-8 (Version None)
Quarter: 2010Q1

REPORT INFORMATION
  Report Type: 
  Country: None (occurrence: None)
  Receive Date: 20100331
  Receipt Date: 20100331
  Transmission Date: 20100710
  Serious: Yes (Hospitalization)
  Sender: FDA-Public Use
  Company Number: None

PATIENT
  Sex: Female
  Weight: 65 kg

DRUGS (2)
  1. CYCLOPHOSPHAMIDE [Suspect]
     Dosage: 990 MG
  2. DOXORUBICIN HCL [Suspect]
     Dosage: 99 MG

REACTIONS (12)
  - ATRIAL FIBRILLATION [None]
  - BLOOD CALCIUM DECREASED [None]
  - DEHYDRATION [None]
  - DIARRHOEA [None]
  - ESCHERICHIA URINARY TRACT INFECTION [None]
  - FATIGUE [None]
  - HYPONATRAEMIA [None]
  - NAUSEA [None]
  - PANCYTOPENIA [None]
  - RESPIRATORY RATE INCREASED [None]
  - TACHYCARDIA [None]
  - VOMITING [None]
